FAERS Safety Report 19316056 (Version 9)
Quarter: 2024Q1

REPORT INFORMATION
  Report Type: Report from Study
  Country: MX (occurrence: MX)
  Receive Date: 20210527
  Receipt Date: 20240320
  Transmission Date: 20240410
  Serious: Yes (Disabling, Other)
  Sender: FDA-Public Use
  Company Number: NVSC2021MX115710

PATIENT
  Sex: Female
  Weight: 56 kg

DRUGS (2)
  1. GILENYA [Suspect]
     Active Substance: FINGOLIMOD HYDROCHLORIDE
     Indication: Multiple sclerosis
     Dosage: 0.5 MG, QD
     Route: 048
     Dates: start: 201607, end: 202109
  2. GILENYA [Suspect]
     Active Substance: FINGOLIMOD HYDROCHLORIDE
     Dosage: 0.5 MG, QD
     Route: 048
     Dates: start: 20211217

REACTIONS (31)
  - Amnesia [Not Recovered/Not Resolved]
  - Immunodeficiency [Unknown]
  - Gait disturbance [Recovering/Resolving]
  - Multiple sclerosis relapse [Recovered/Resolved with Sequelae]
  - Fatigue [Not Recovered/Not Resolved]
  - Arthralgia [Recovering/Resolving]
  - Herpes zoster [Not Recovered/Not Resolved]
  - Pain [Not Recovered/Not Resolved]
  - Rash [Not Recovered/Not Resolved]
  - Burning sensation [Not Recovered/Not Resolved]
  - COVID-19 [Recovering/Resolving]
  - Fall [Recovered/Resolved with Sequelae]
  - Anosmia [Recovering/Resolving]
  - Emotional distress [Unknown]
  - Oropharyngeal pain [Recovering/Resolving]
  - Musculoskeletal disorder [Recovering/Resolving]
  - Pyrexia [Unknown]
  - Rhinorrhoea [Unknown]
  - Gastrointestinal infection [Not Recovered/Not Resolved]
  - Back pain [Recovering/Resolving]
  - Influenza [Not Recovered/Not Resolved]
  - Cough [Not Recovered/Not Resolved]
  - Anxiety [Recovering/Resolving]
  - Insomnia [Recovering/Resolving]
  - Chest pain [Recovering/Resolving]
  - Pain in extremity [Recovering/Resolving]
  - Asthenia [Recovering/Resolving]
  - Headache [Recovering/Resolving]
  - Dizziness [Not Recovered/Not Resolved]
  - Balance disorder [Not Recovered/Not Resolved]
  - Decreased activity [Unknown]

NARRATIVE: CASE EVENT DATE: 20160101
